FAERS Safety Report 7206758-0 (Version None)
Quarter: 2011Q1

REPORT INFORMATION
  Report Type: 
  Country: None (occurrence: None)
  Receive Date: 20110103
  Receipt Date: 20101224
  Transmission Date: 20110831
  Serious: Yes (Hospitalization)
  Sender: FDA-Public Use
  Company Number: US-ABBOTT-10P-163-0657029-00

PATIENT
  Sex: Female

DRUGS (6)
  1. CITALOPRAM [Concomitant]
     Indication: BIPOLAR DISORDER
  2. IBUPROFEN [Concomitant]
     Indication: PREMEDICATION
  3. DEPAKOTE [Suspect]
     Indication: BIPOLAR DISORDER
     Dates: end: 20100301
  4. REBIF [Suspect]
     Indication: MULTIPLE SCLEROSIS
     Route: 058
     Dates: start: 20091109
  5. LEVOXYL [Concomitant]
     Indication: HYPOTHYROIDISM
  6. RISPERDAL [Concomitant]
     Indication: BIPOLAR DISORDER

REACTIONS (12)
  - PAIN [None]
  - MULTIPLE SCLEROSIS RELAPSE [None]
  - FALL [None]
  - JOINT SWELLING [None]
  - MUSCLE SPASMS [None]
  - WEIGHT DECREASED [None]
  - PLATELET COUNT DECREASED [None]
  - ARTHROPATHY [None]
  - JOINT STIFFNESS [None]
  - ABASIA [None]
  - MUSCULAR WEAKNESS [None]
  - PARAESTHESIA [None]
